FAERS Safety Report 11834003 (Version 1)
Quarter: 2015Q4

REPORT INFORMATION
  Report Type: Spontaneous
  Country: US (occurrence: US)
  Receive Date: 20151214
  Receipt Date: 20151214
  Transmission Date: 20160305
  Serious: Yes (Other)
  Sender: FDA-Public Use
  Company Number: US-PRESTIUM-2015RN000088

PATIENT
  Age: 64 Year
  Sex: Male

DRUGS (2)
  1. CLOBETASOL PROPIONATE. [Suspect]
     Active Substance: CLOBETASOL PROPIONATE
     Indication: PSORIASIS
     Dosage: 0.05 %, UNK
     Route: 061
     Dates: end: 201510
  2. CLOBETASOL PROPIONATE. [Suspect]
     Active Substance: CLOBETASOL PROPIONATE
     Indication: ALOPECIA

REACTIONS (8)
  - Blindness [Recovered/Resolved]
  - Off label use [Recovered/Resolved]
  - Accidental exposure to product [Recovered/Resolved]
  - Condition aggravated [Recovered/Resolved]
  - Incorrect drug administration duration [Recovered/Resolved]
  - Eyelid oedema [Recovered/Resolved]
  - Ocular hyperaemia [Recovered/Resolved]
  - Eye swelling [Recovered/Resolved]

NARRATIVE: CASE EVENT DATE: 2015
